FAERS Safety Report 11420349 (Version 1)
Quarter: 2015Q3

REPORT INFORMATION
  Report Type: Spontaneous
  Country: US (occurrence: US)
  Receive Date: 20150826
  Receipt Date: 20150826
  Transmission Date: 20151125
  Serious: No
  Sender: FDA-Public Use
  Company Number: US-TARO-2015TAR00626

PATIENT
  Age: 66 Year
  Sex: Female
  Weight: 77.98 kg

DRUGS (1)
  1. DESOXIMETASONE GEL USP 0.05% [Suspect]
     Active Substance: DESOXIMETASONE
     Indication: DERMATITIS CONTACT
     Dosage: JUST ENOUGH TO COVER THE AFFECTED AREAS (ARMS AND LEGS), 2X/DAY
     Route: 061
     Dates: start: 20150629

REACTIONS (3)
  - Drug effect incomplete [Not Recovered/Not Resolved]
  - Secretion discharge [Recovering/Resolving]
  - Blister [Recovered/Resolved]

NARRATIVE: CASE EVENT DATE: 201506
